FAERS Safety Report 23609455 (Version 1)
Quarter: 2024Q1

REPORT INFORMATION
  Report Type: Spontaneous
  Country: DK (occurrence: DK)
  Receive Date: 20240308
  Receipt Date: 20240308
  Transmission Date: 20240410
  Serious: Yes (Disabling)
  Sender: FDA-Public Use
  Company Number: None

PATIENT
  Age: 72 Year
  Sex: Female

DRUGS (1)
  1. VABYSMO [Suspect]
     Active Substance: FARICIMAB\FARICIMAB-SVOA
     Indication: Neovascular age-related macular degeneration
     Dosage: STRENGTH: 120 MG/ML?DOSAGE: IN LEFT EYE. LASTED KNOWN INJECTION WAS GIVEN ON 13/FEB/2024.
     Route: 065
     Dates: start: 20200608

REACTIONS (3)
  - Vision blurred [Unknown]
  - Ocular hyperaemia [Unknown]
  - Endophthalmitis [Recovering/Resolving]

NARRATIVE: CASE EVENT DATE: 20240214
